FAERS Safety Report 5836489-0 (Version None)
Quarter: 2008Q3

REPORT INFORMATION
  Report Type: 
  Country: None (occurrence: None)
  Receive Date: 20080807
  Receipt Date: 20080731
  Transmission Date: 20090109
  Serious: Yes (Life-Threatening, Hospitalization)
  Sender: FDA-Public Use
  Company Number: PHHY2008NO16300

PATIENT
  Sex: Male

DRUGS (10)
  1. GLEEVEC [Suspect]
     Indication: SYSTEMIC SCLEROSIS
     Dosage: 100 MG, BID
     Route: 048
     Dates: start: 20080623, end: 20080707
  2. GLEEVEC [Suspect]
     Dosage: 200 MG, BID
     Route: 048
     Dates: start: 20080707, end: 20080714
  3. BACTRIM [Suspect]
     Indication: INFECTION PROPHYLAXIS
     Dosage: 2 DOSAGE FORMS DAILY
     Route: 048
     Dates: start: 20080201, end: 20080716
  4. CALCIGRAN [Concomitant]
     Dosage: 1 DF, BID
     Route: 048
  5. PREDNISOLON [Concomitant]
     Dosage: 15 MG DAILY
     Route: 048
  6. SENDOXAN [Concomitant]
     Indication: IMMUNOSUPPRESSION
     Dosage: UNK MG, QMO
     Dates: start: 20071101
  7. ADALAT [Concomitant]
     Dosage: 30 MG DAILY
     Route: 048
  8. ZANTAC [Concomitant]
     Dosage: 30 MG, QD
     Route: 048
  9. TRIOBE [Concomitant]
     Dosage: ONCE DAILY
     Route: 048
  10. COZAAR [Concomitant]
     Indication: HYPERTENSION
     Dosage: 1 DF, QD
     Route: 048
     Dates: start: 20000101

REACTIONS (6)
  - ARTHRALGIA [None]
  - C-REACTIVE PROTEIN INCREASED [None]
  - LEUKOPENIA [None]
  - NEUTROPENIA [None]
  - PYREXIA [None]
  - WHITE BLOOD CELL COUNT DECREASED [None]
